FAERS Safety Report 6892551-5 (Version None)
Quarter: 2010Q3

REPORT INFORMATION
  Report Type: 
  Country: None (occurrence: None)
  Receive Date: 20100731
  Receipt Date: 20080827
  Transmission Date: 20110219
  Serious: Yes (Disabling, Other)
  Sender: FDA-Public Use
  Company Number: US-PFIZER INC-2004007528

PATIENT
  Sex: Female
  Weight: 63.5 kg

DRUGS (6)
  1. NEURONTIN [Suspect]
     Indication: CONVULSION
     Route: 048
  2. XANAX [Suspect]
     Indication: PANIC ATTACK
     Route: 048
  3. XANAX [Suspect]
     Indication: AGORAPHOBIA
  4. GEODON [Suspect]
  5. SERZONE [Suspect]
     Indication: DEPRESSION
     Route: 048
  6. PREMARIN [Concomitant]

REACTIONS (5)
  - AMNESIA [None]
  - ATTENTION DEFICIT/HYPERACTIVITY DISORDER [None]
  - CONVULSION [None]
  - COORDINATION ABNORMAL [None]
  - DYSARTHRIA [None]
